FAERS Safety Report 20976052 (Version 1)
Quarter: 2022Q2

REPORT INFORMATION
  Report Type: Spontaneous
  Country: US (occurrence: None)
  Receive Date: 20220617
  Receipt Date: 20220617
  Transmission Date: 20220720
  Serious: Yes (Other)
  Sender: FDA-Public Use
  Company Number: None

PATIENT
  Age: 39 Year
  Sex: Male
  Weight: 96.75 kg

DRUGS (2)
  1. DEXTROAMPHET SACCHARAT, AMPHET ASPARTATE, DEXTROAMPHET SULFATE AND AMP [Suspect]
     Active Substance: AMPHETAMINE ASPARTATE\AMPHETAMINE SULFATE\DEXTROAMPHETAMINE SACCHARATE\DEXTROAMPHETAMINE SULFATE
     Indication: Attention deficit hyperactivity disorder
     Dosage: OTHER QUANTITY : 225 TABLET(S);?
     Route: 048
     Dates: start: 20220617, end: 20220617
  2. Adderall immediate release 5mg at two and one-half tablets a day in am [Concomitant]

REACTIONS (4)
  - Product substitution issue [None]
  - Abdominal pain upper [None]
  - Lethargy [None]
  - Product formulation issue [None]

NARRATIVE: CASE EVENT DATE: 20220617
